FAERS Safety Report 23907973 (Version 1)
Quarter: 2024Q2

REPORT INFORMATION
  Report Type: Report from Study
  Country: US (occurrence: US)
  Receive Date: 20240528
  Receipt Date: 20240528
  Transmission Date: 20240716
  Serious: Yes (Other)
  Sender: FDA-Public Use
  Company Number: US-ABBVIE-5775660

PATIENT
  Sex: Male

DRUGS (1)
  1. VENCLEXTA [Suspect]
     Active Substance: VENETOCLAX
     Indication: Plasma cell myeloma
     Dosage: TAKE 8 TABLETS BY MOUTH DAILY WITH FOOD AND WATER?FORM STRENGTH: 100 MG
     Route: 048

REACTIONS (1)
  - Stem cell transplant [Not Recovered/Not Resolved]
